FAERS Safety Report 7438460-4 (Version None)
Quarter: 2011Q2

REPORT INFORMATION
  Report Type: 
  Country: None (occurrence: None)
  Receive Date: 20110426
  Receipt Date: 20110421
  Transmission Date: 20111010
  Serious: Yes (Other)
  Sender: FDA-Public Use
  Company Number: US-PFIZER INC-2010031291

PATIENT
  Sex: Female
  Weight: 52.154 kg

DRUGS (5)
  1. MULTI-VITAMINS [Concomitant]
     Dosage: UNK
  2. LYRICA [Suspect]
     Dosage: 50 MG, 2X/DAY
     Route: 048
  3. SOMA [Concomitant]
     Indication: MUSCLE SPASMS
     Dosage: 500 MG, 2X/DAY
     Route: 048
  4. ACETYLSALICYLIC ACID [Concomitant]
     Indication: CARDIAC DISORDER
     Dosage: 81 MG, 2X/DAY
     Route: 048
  5. LYRICA [Suspect]
     Indication: FIBROMYALGIA
     Dosage: 75 MG, 2X/DAY
     Route: 048
     Dates: start: 20080101

REACTIONS (4)
  - ARTHROPATHY [None]
  - CONVULSION [None]
  - BEDRIDDEN [None]
  - VISUAL IMPAIRMENT [None]
